FAERS Safety Report 9621338 (Version 1)
Quarter: 2013Q4

REPORT INFORMATION
  Report Type: Spontaneous
  Country: US (occurrence: None)
  Receive Date: 20131011
  Receipt Date: 20131011
  Transmission Date: 20140711
  Serious: Yes (Hospitalization)
  Sender: FDA-Public Use
  Company Number: None

PATIENT
  Age: 60 Year
  Sex: Female
  Weight: 104.55 kg

DRUGS (8)
  1. OXALIPLATIN (ELOXATIN) [Suspect]
  2. ALBUTEROL METER DOSE INHALER [Concomitant]
  3. LIPITOR [Concomitant]
  4. LOSARTAN/HYDROCHLORIATHIAZIDE [Concomitant]
  5. SYNTHROID [Concomitant]
  6. 5-FLUOROURACIL [Suspect]
  7. BEVACIZUMAB [Suspect]
  8. LEUCOVORIN [Suspect]

REACTIONS (4)
  - Hypoaesthesia [None]
  - Paraesthesia [None]
  - Hypoaesthesia [None]
  - Cognitive disorder [None]
